FAERS Safety Report 18569875 (Version 1)
Quarter: 2020Q4

REPORT INFORMATION
  Report Type: Spontaneous
  Country: US (occurrence: US)
  Receive Date: 20201202
  Receipt Date: 20201202
  Transmission Date: 20210114
  Serious: No
  Sender: FDA-Public Use
  Company Number: None

PATIENT
  Sex: Male

DRUGS (1)
  1. ABIRATERONE ACETATE 250 MG NOVADOZ PHARMACEUTICALS [Suspect]
     Active Substance: ABIRATERONE ACETATE
     Indication: PROSTATE CANCER
     Dosage: OTHER FREQUENCY:4 TABS DAILY;?
     Route: 048

REACTIONS (5)
  - Atrial fibrillation [None]
  - Urinary tract infection [None]
  - Dementia [None]
  - Delirium [None]
  - Arthralgia [None]
